FAERS Safety Report 7068274 (Version 2)
Quarter: 2014Q3

REPORT INFORMATION
  Report Type: Spontaneous
  Country: US (occurrence: None)
  Receive Date: 20090724
  Receipt Date: 20140812
  Transmission Date: 20150326
  Serious: Yes (Other)
  Sender: FDA-Public Use
  Company Number: 2009S1005626

PATIENT
  Age: 65 Year
  Sex: Female
  Weight: 59 kg

DRUGS (4)
  1. PHOSPHO-SODA [Suspect]
     Active Substance: SODIUM PHOSPHATE, DIBASIC\SODIUM PHOSPHATE, MONOBASIC
     Route: 048
  2. ATARAX [Concomitant]
     Active Substance: HYDROXYZINE\HYDROXYZINE HYDROCHLORIDE
  3. HYDROCHLOROTHIAZIDE (HYDROCHLOROTHIAZIDE) [Concomitant]
     Active Substance: HYDROCHLOROTHIAZIDE
  4. BISOPROLOL FUNMARATE (BISOPROLOL FUMARATE) [Concomitant]

REACTIONS (1)
  - Renal failure [None]
